FAERS Safety Report 25960377 (Version 1)
Quarter: 2025Q4

REPORT INFORMATION
  Report Type: Report from Study
  Country: CA (occurrence: CA)
  Receive Date: 20251026
  Receipt Date: 20251026
  Transmission Date: 20260118
  Serious: Yes (Other)
  Sender: ABBVIE
  Company Number: CA-ABBVIE-6515025

PATIENT
  Age: 33 Year
  Sex: Female

DRUGS (2)
  1. SKYRIZI [Suspect]
     Active Substance: RISANKIZUMAB-RZAA
     Indication: Psoriasis
     Route: 058
  2. COSENTYX [Suspect]
     Active Substance: SECUKINUMAB
     Indication: Product used for unknown indication
     Route: 065

REACTIONS (7)
  - Anaphylactic shock [Unknown]
  - Acne [Unknown]
  - Urticaria [Unknown]
  - Psoriasis [Unknown]
  - Stress [Unknown]
  - Fear [Unknown]
  - Cold urticaria [Unknown]

NARRATIVE: CASE EVENT DATE: 20250501
